FAERS Safety Report 25594077 (Version 1)
Quarter: 2025Q3

REPORT INFORMATION
  Report Type: Spontaneous
  Country: CN (occurrence: CN)
  Receive Date: 20250723
  Receipt Date: 20250723
  Transmission Date: 20251020
  Serious: Yes (Other)
  Sender: RANBAXY
  Company Number: CN-SUN PHARMACEUTICAL INDUSTRIES INC-2025R1-517804

PATIENT
  Age: 43 Year
  Sex: Male

DRUGS (7)
  1. LENVATINIB [Suspect]
     Active Substance: LENVATINIB
     Indication: Hepatocellular carcinoma
     Dosage: 8 MILLIGRAM, QD
     Route: 048
     Dates: start: 20230218
  2. OXALIPLATIN [Suspect]
     Active Substance: OXALIPLATIN
     Indication: Hepatocellular carcinoma
     Route: 065
  3. FLUOROURACIL [Suspect]
     Active Substance: FLUOROURACIL
     Indication: Hepatocellular carcinoma
     Route: 013
     Dates: start: 20230217
  4. EPOTHILONE NOS [Suspect]
     Active Substance: UNSPECIFIED INGREDIENT
     Indication: Hepatocellular carcinoma
     Route: 013
     Dates: start: 20230217
  5. LIPIODOL [Suspect]
     Active Substance: ETHIODIZED OIL
     Indication: Hepatocellular carcinoma
     Route: 065
  6. RALTITREXED [Suspect]
     Active Substance: RALTITREXED
     Indication: Hepatocellular carcinoma
     Route: 065
  7. TISLELIZUMAB [Suspect]
     Active Substance: TISLELIZUMAB
     Indication: Hepatocellular carcinoma
     Route: 065
     Dates: start: 20230312

REACTIONS (1)
  - Tumour pseudoprogression [Unknown]
